FAERS Safety Report 9194436 (Version 1)
Quarter: 2013Q1

REPORT INFORMATION
  Report Type: Report from Study
  Country: GB (occurrence: GB)
  Receive Date: 20130327
  Receipt Date: 20130327
  Transmission Date: 20140127
  Serious: Yes (Congenital Anomaly)
  Sender: FDA-Public Use
  Company Number: GB-PFIZER INC-2013097496

PATIENT
  Sex: Male
  Weight: 4.26 kg

DRUGS (3)
  1. LEVETIRACETAM [Suspect]
     Indication: EPILEPSY
     Dosage: 3000 MG/DAY
     Route: 064
  2. GABAPENTIN [Suspect]
     Indication: EPILEPSY
     Dosage: 2400 MG/DAY
     Route: 064
  3. CARBAMAZEPINE [Suspect]
     Indication: EPILEPSY
     Dosage: 800 MG/DAY
     Route: 064

REACTIONS (2)
  - Maternal exposure during pregnancy [Unknown]
  - Talipes [Unknown]
